FAERS Safety Report 5247186-7 (Version None)
Quarter: 2007Q1

REPORT INFORMATION
  Report Type: 
  Country: None (occurrence: None)
  Receive Date: 20070221
  Receipt Date: 20070209
  Transmission Date: 20070707
  Serious: Yes (Hospitalization)
  Sender: FDA-Public Use
  Company Number: 230349K07USA

PATIENT
  Age: 35 Year
  Sex: Male

DRUGS (4)
  1. REBIF [Suspect]
     Indication: MULTIPLE SCLEROSIS
     Dosage: 44 MCG, 3 IN 1 WEEKS, SUBCUTANEOUS
     Route: 058
     Dates: start: 20061009
  2. NOVANTRONE [Suspect]
     Indication: MULTIPLE SCLEROSIS
     Dosage: 4 IN 1 YEARS, INTRAVENOUS (NOT OTHERWISE SPECIFIED)
     Dates: start: 20061221
  3. LIPRAM (NORTASE) [Concomitant]
  4. VICODIN [Concomitant]

REACTIONS (6)
  - ABNORMAL BEHAVIOUR [None]
  - AMNESIA [None]
  - HEPATOMEGALY [None]
  - PANCREATITIS [None]
  - URINARY INCONTINENCE [None]
  - URINARY TRACT INFECTION [None]
